FAERS Safety Report 24938964 (Version 2)
Quarter: 2025Q1

REPORT INFORMATION
  Report Type: Spontaneous
  Country: JP (occurrence: JP)
  Receive Date: 20250206
  Receipt Date: 20250326
  Transmission Date: 20250409
  Serious: Yes (Other)
  Sender: ASTELLAS
  Company Number: JP-ASTELLAS-2024-AER-008982

PATIENT
  Age: 8 Decade
  Sex: Female

DRUGS (4)
  1. VYLOY [Suspect]
     Active Substance: ZOLBETUXIMAB-CLZB
     Indication: Gastric cancer
     Dosage: DOSING STARTED AT 70 ML/HR, SPEED INCREASED TO 200 ML/HR AFTER 60 MINUTES, INTERRUPTED, RESUMED AT 7
     Route: 042
     Dates: start: 20240925, end: 20240925
  2. VYLOY [Suspect]
     Active Substance: ZOLBETUXIMAB-CLZB
     Route: 042
     Dates: start: 20241028, end: 20241028
  3. Novamin [Concomitant]
     Indication: Nausea
     Route: 065
     Dates: start: 20240925
  4. Novamin [Concomitant]
     Route: 065
     Dates: start: 20241028

REACTIONS (3)
  - Biliary obstruction [Not Recovered/Not Resolved]
  - Nausea [Recovered/Resolved]
  - Nausea [Recovered/Resolved]

NARRATIVE: CASE EVENT DATE: 20240925
